FAERS Safety Report 11637260 (Version 1)
Quarter: 2015Q4

REPORT INFORMATION
  Report Type: Report from Study
  Country: JP (occurrence: JP)
  Receive Date: 20151016
  Receipt Date: 20151016
  Transmission Date: 20160304
  Serious: Yes (Disabling, Other)
  Sender: FDA-Public Use
  Company Number: JP-009507513-2011SP034379

PATIENT
  Age: 1 Month
  Sex: Female
  Weight: 2 kg

DRUGS (26)
  1. DIAZOXIDE [Suspect]
     Active Substance: DIAZOXIDE
     Dosage: 10 MG, TID
     Route: 048
     Dates: start: 20100217, end: 20100223
  2. LASIX [Concomitant]
     Active Substance: FUROSEMIDE
     Indication: PULMONARY ARTERY ATRESIA
     Dosage: 4 MG, QD, DIVIDED DOSE FREQUENCY UNKNOWN
     Route: 048
  3. ALFAROL [Concomitant]
     Active Substance: ALFACALCIDOL
     Indication: VITAMIN D DEFICIENCY
     Dosage: 0.15 ML, QD, DIVIDED DOSE FREQUENCY UNKNOWN
     Route: 048
     Dates: start: 20090908, end: 20101111
  4. ROCORNAL [Concomitant]
     Indication: PULMONARY ARTERY ATRESIA
     Dosage: 20 MG, QD, DIVIDED DOSE FREQUENCY UNKNOWN
     Route: 048
     Dates: start: 20100128
  5. DIAZOXIDE [Suspect]
     Active Substance: DIAZOXIDE
     Dosage: 17 MG, TID
     Route: 048
     Dates: start: 20090911, end: 20090920
  6. DIAZOXIDE [Suspect]
     Active Substance: DIAZOXIDE
     Dosage: 5 MG, TID
     Route: 048
     Dates: start: 20100928, end: 20101220
  7. RIBALL [Concomitant]
     Active Substance: ALLOPURINOL
     Indication: HYPERURICAEMIA
     Dosage: 10 MG, QD, DIVIDED DOSE FREQUENCY UNKNOWN
     Route: 048
     Dates: start: 20090914, end: 20091027
  8. THYRADIN-S [Concomitant]
     Active Substance: LEVOTHYROXINE
     Indication: HYPOTHYROIDISM
     Dosage: 20 MICROGRAM, QD
     Route: 048
     Dates: start: 20100316
  9. DIAZOXIDE [Suspect]
     Active Substance: DIAZOXIDE
     Indication: HYPOGLYCAEMIA
     Dosage: 7 MG, TID
     Route: 048
     Dates: start: 20090829, end: 20090831
  10. DIAZOXIDE [Suspect]
     Active Substance: DIAZOXIDE
     Dosage: 13 MG, TID
     Route: 048
     Dates: start: 20100525, end: 20100628
  11. DIAZOXIDE [Suspect]
     Active Substance: DIAZOXIDE
     Dosage: 7 MG, TID
     Route: 048
     Dates: start: 20100727, end: 20100827
  12. DEXTROSE. [Concomitant]
     Active Substance: DEXTROSE
     Indication: HYPOGLYCAEMIA
     Dosage: 20 ML, QD, DIVIDED DOSE FREQUENCY UNKNOWN
     Route: 042
     Dates: start: 20090820, end: 20090828
  13. LASIX [Concomitant]
     Active Substance: FUROSEMIDE
     Dosage: 40 MG, QD, DIVIDED DOSE FREQUENCY UNKNOWN
     Route: 048
  14. RENIVACE [Concomitant]
     Active Substance: ENALAPRIL
     Indication: PULMONARY ARTERY ATRESIA
     Dosage: 0.5 MG, QD, DIVIDED DOSE FREQUENCY UNKNOWN
     Route: 048
     Dates: start: 20100128, end: 20100304
  15. ASPIRIN. [Concomitant]
     Active Substance: ASPIRIN
     Indication: PULMONARY ARTERY ATRESIA
     Dosage: 20 MG, QD, DIVIDED DOSE FREQUENCY UNKNOWN
     Route: 048
     Dates: start: 20100128
  16. CATAPRES [Concomitant]
     Active Substance: CLONIDINE HYDROCHLORIDE
     Indication: PULMONARY ARTERY ATRESIA
     Dosage: 7 MICROGRAM, QD, DIVIDED DOSE FREQUENCY UNKNOWN
     Route: 048
     Dates: start: 20100202, end: 20100225
  17. DIAZOXIDE [Suspect]
     Active Substance: DIAZOXIDE
     Dosage: 17 MG, TID
     Route: 048
     Dates: start: 20100224, end: 20100524
  18. DIAZOXIDE [Suspect]
     Active Substance: DIAZOXIDE
     Dosage: 10 MG, TID
     Route: 048
     Dates: start: 20100629, end: 20100726
  19. DIAZOXIDE [Suspect]
     Active Substance: DIAZOXIDE
     Dosage: 3 MG, TID
     Route: 048
     Dates: start: 20101227, end: 20110422
  20. ONEALFA [Concomitant]
     Active Substance: ALFACALCIDOL
     Indication: VITAMIN D DEFICIENCY
     Dosage: 0.7 MICROGRAM, QD, DIVIDED DOSE FREQUENCY UNKNOWN
     Route: 048
     Dates: start: 20091222
  21. DIAZOXIDE [Suspect]
     Active Substance: DIAZOXIDE
     Dosage: 23 MG, TID
     Route: 048
     Dates: start: 20090921, end: 20090927
  22. DIAZOXIDE [Suspect]
     Active Substance: DIAZOXIDE
     Dosage: 13 MG, TID
     Route: 048
     Dates: start: 20090904, end: 20090910
  23. DIAZOXIDE [Suspect]
     Active Substance: DIAZOXIDE
     Dosage: 17 MG, BID
     Route: 048
     Dates: start: 20090928, end: 20090928
  24. ALDACTONE A [Concomitant]
     Active Substance: SPIRONOLACTONE
     Indication: PULMONARY ARTERY ATRESIA
     Dosage: 4 MG, QD, DIVIDED DOSE FREQUENCY UNKNOWN
     Route: 048
  25. CALCIUM CARBONATE. [Concomitant]
     Active Substance: CALCIUM CARBONATE
     Indication: HYPOCALCAEMIA
     Dosage: 0.3 G, QD, DIVIDED DOSE FREQUENCY UNKNOWN
     Route: 048
     Dates: start: 20091222, end: 20100913
  26. DIAZOXIDE [Suspect]
     Active Substance: DIAZOXIDE
     Dosage: 10 MG, TID
     Route: 048
     Dates: start: 20090901, end: 20090903

REACTIONS (6)
  - Hypocalcaemia [Recovered/Resolved]
  - Hyperuricaemia [Recovered/Resolved]
  - Febrile convulsion [Recovered/Resolved]
  - Vitamin D deficiency [Recovered/Resolved]
  - Hypothyroidism [Not Recovered/Not Resolved]
  - Cardiac failure [Recovered/Resolved]

NARRATIVE: CASE EVENT DATE: 20090908
